FAERS Safety Report 7572827-9 (Version None)
Quarter: 2011Q2

REPORT INFORMATION
  Report Type: 
  Country: None (occurrence: None)
  Receive Date: 20110627
  Receipt Date: 20110622
  Transmission Date: 20111010
  Serious: Yes (Other)
  Sender: FDA-Public Use
  Company Number: US-PFIZER INC-2011139651

PATIENT
  Sex: Male
  Weight: 74.376 kg

DRUGS (6)
  1. MULTI-VITAMINS [Concomitant]
     Dosage: UNK
  2. VITAMIN D [Concomitant]
     Dosage: UNK
  3. FINASTERIDE [Concomitant]
     Indication: PROSTATIC DISORDER
     Dosage: UNK
  4. ACETYLSALICYLIC ACID [Concomitant]
     Dosage: 81 MG, UNK
  5. FISH OIL [Concomitant]
     Dosage: UNK
  6. LIPITOR [Suspect]
     Indication: BLOOD CHOLESTEROL INCREASED
     Dosage: 20 MG, 1X/DAY
     Route: 048
     Dates: start: 20110301

REACTIONS (1)
  - HEPATIC ENZYME INCREASED [None]
